FAERS Safety Report 12827215 (Version 1)
Quarter: 2016Q4

REPORT INFORMATION
  Report Type: Spontaneous
  Country: US (occurrence: US)
  Receive Date: 20161007
  Receipt Date: 20161007
  Transmission Date: 20170207
  Serious: Yes (Hospitalization, Other)
  Sender: FDA-Public Use
  Company Number: US-TEVA-699173USA

PATIENT
  Age: 54 Year
  Sex: Female

DRUGS (5)
  1. ULTRAM [Suspect]
     Active Substance: TRAMADOL HYDROCHLORIDE
     Indication: MUSCLE SPASMS
     Dosage: 100 MILLIGRAM DAILY;
     Route: 048
     Dates: start: 20160617, end: 20160617
  2. METHOTREXATE RA [Concomitant]
     Dosage: WEEKLY
     Route: 058
     Dates: start: 201511
  3. HUMIRA [Suspect]
     Active Substance: ADALIMUMAB
     Indication: RHEUMATOID ARTHRITIS
     Dosage: 40 MG EVERY OTHER WEEK
     Route: 058
     Dates: start: 20160509
  4. ULTRAM [Suspect]
     Active Substance: TRAMADOL HYDROCHLORIDE
     Dosage: 100 MILLIGRAM DAILY;
     Dates: start: 2016
  5. BACLOFEN. [Suspect]
     Active Substance: BACLOFEN
     Indication: MUSCLE SPASMS
     Dosage: 40 MILLIGRAM DAILY;
     Route: 048
     Dates: start: 2011, end: 20160617

REACTIONS (4)
  - Unresponsive to stimuli [Recovered/Resolved]
  - Pulmonary embolism [Unknown]
  - Suicide attempt [Recovered/Resolved]
  - Intentional overdose [Recovered/Resolved]

NARRATIVE: CASE EVENT DATE: 20160616
